FAERS Safety Report 26187669 (Version 2)
Quarter: 2025Q4

REPORT INFORMATION
  Report Type: Spontaneous
  Country: US (occurrence: US)
  Receive Date: 20251222
  Receipt Date: 20251222
  Transmission Date: 20260117
  Serious: Yes (Other)
  Sender: GILEAD
  Company Number: US-GILEAD-2025-0741984

PATIENT

DRUGS (1)
  1. TRUVADA [Suspect]
     Active Substance: EMTRICITABINE\TENOFOVIR DISOPROXIL FUMARATE
     Indication: Product used for unknown indication
     Dosage: UNK
     Route: 048
     Dates: start: 20130101, end: 20161231

REACTIONS (5)
  - Renal failure [Unknown]
  - Multiple fractures [Unknown]
  - Bone density decreased [Unknown]
  - Protein total increased [Unknown]
  - Vitamin D deficiency [Unknown]
